FAERS Safety Report 8287981-3 (Version None)
Quarter: 2012Q2

REPORT INFORMATION
  Report Type: 
  Country: None (occurrence: None)
  Receive Date: 20120411
  Receipt Date: 20120411
  Transmission Date: 20120825
  Serious: Yes (Hospitalization)
  Sender: FDA-Public Use
  Company Number: None

PATIENT
  Sex: Male
  Weight: 61.6 kg

DRUGS (9)
  1. PERCOCET [Concomitant]
  2. FOLIC ACID [Concomitant]
  3. DEXAMETHASONE [Concomitant]
  4. PHENERGAN HCL [Concomitant]
  5. BEVAZIUMAB (RHUMAB VEGF) 907 MG [Suspect]
     Dosage: 907 MG
  6. PEMETREXED [Suspect]
     Dosage: 900 MG
  7. FLUOXETINE [Concomitant]
  8. ONDANSETRON [Concomitant]
  9. REMERON [Concomitant]

REACTIONS (1)
  - PNEUMONIA [None]
